FAERS Safety Report 9251797 (Version 1)
Quarter: 2013Q2

REPORT INFORMATION
  Report Type: Report from Study
  Country: MX (occurrence: MX)
  Receive Date: 20130424
  Receipt Date: 20130424
  Transmission Date: 20140414
  Serious: Yes (Other)
  Sender: FDA-Public Use
  Company Number: PHHY2013MX040089

PATIENT
  Age: 90 Year
  Sex: Female

DRUGS (5)
  1. ONBREZ [Suspect]
     Indication: BRONCHIAL DISORDER
     Dosage: 300 UG, QD
  2. ONBREZ [Suspect]
     Indication: OFF LABEL USE
  3. METOPROLOL [Concomitant]
     Indication: CARDIAC DISORDER
     Dosage: UNK
     Dates: start: 2009
  4. LOSARTAN [Concomitant]
     Indication: BLOOD PRESSURE
     Dosage: UNK
     Dates: start: 2009
  5. FELODIPINE [Concomitant]
     Indication: BLOOD PRESSURE
     Dosage: UNK
     Dates: start: 2009

REACTIONS (1)
  - Emphysema [Not Recovered/Not Resolved]
